FAERS Safety Report 11969843 (Version 1)
Quarter: 2016Q1

REPORT INFORMATION
  Report Type: Spontaneous
  Country: CA (occurrence: CA)
  Receive Date: 20160128
  Receipt Date: 20160128
  Transmission Date: 20160526
  Serious: Yes (Other)
  Sender: FDA-Public Use
  Company Number: CA-GLAXOSMITHKLINE-CA2015GSK169136

PATIENT
  Sex: Female

DRUGS (1)
  1. BENLYSTA [Suspect]
     Active Substance: BELIMUMAB
     Indication: SYSTEMIC LUPUS ERYTHEMATOSUS
     Dosage: 870 MG, Z
     Route: 042
     Dates: start: 20150421, end: 20150930

REACTIONS (6)
  - Salmonellosis [Recovering/Resolving]
  - Clostridium difficile infection [Recovering/Resolving]
  - Blood test abnormal [Unknown]
  - Ill-defined disorder [Unknown]
  - Urinary tract infection [Recovering/Resolving]
  - Infection [Recovering/Resolving]
